FAERS Safety Report 20970060 (Version 3)
Quarter: 2024Q1

REPORT INFORMATION
  Report Type: Spontaneous
  Country: US (occurrence: US)
  Receive Date: 20220616
  Receipt Date: 20240111
  Transmission Date: 20240410
  Serious: No
  Sender: FDA-Public Use
  Company Number: US-SA-2022SA208595

PATIENT
  Age: 49 Year
  Sex: Male

DRUGS (3)
  1. FABRAZYME [Suspect]
     Active Substance: AGALSIDASE BETA
     Indication: Fabry^s disease
     Dosage: 90 MG, QOW
     Route: 042
     Dates: start: 201610
  2. LYSERGIDE [Suspect]
     Active Substance: LYSERGIDE
     Dosage: UNK
  3. COVID-19 VACCINE [Concomitant]
     Dosage: UNK

REACTIONS (6)
  - Dyspnoea [Unknown]
  - Tachycardia [Unknown]
  - Malaise [Unknown]
  - Condition aggravated [Unknown]
  - Inappropriate schedule of product administration [Unknown]
  - Intentional dose omission [Unknown]

NARRATIVE: CASE EVENT DATE: 20220524
